FAERS Safety Report 11895313 (Version 2)
Quarter: 2016Q1

REPORT INFORMATION
  Report Type: Report from Study
  Country: HK (occurrence: HK)
  Receive Date: 20160107
  Receipt Date: 20160126
  Transmission Date: 20160526
  Serious: Yes (Hospitalization)
  Sender: FDA-Public Use
  Company Number: CN-BAXALTA-2016BLT000042

PATIENT
  Age: 6 Year
  Sex: Male
  Weight: 24.4 kg

DRUGS (3)
  1. PEGYLATED COAGULATION FACTOR VIII [Suspect]
     Active Substance: RURIOCTOCOG ALFA PEGOL
     Indication: FACTOR VIII DEFICIENCY
     Dosage: 50 IU/KG, 999 IU; LAST ADMINISTRATION
     Route: 042
     Dates: start: 20151227, end: 20151227
  2. PEGYLATED COAGULATION FACTOR VIII [Suspect]
     Active Substance: RURIOCTOCOG ALFA PEGOL
     Indication: PROPHYLAXIS
     Dosage: 50 IU/KG, 1000 IU; EVERY 12 HRS ON 30DEC2015 + 31DEC2015, + DAILY ON 01JAN2016 + 02JAN2016
     Route: 042
     Dates: start: 20151230, end: 20160102
  3. PEGYLATED COAGULATION FACTOR VIII [Suspect]
     Active Substance: RURIOCTOCOG ALFA PEGOL
     Dosage: 50 IU/KG; FIRST ADMINISTRATION
     Route: 042
     Dates: start: 20150409, end: 20150409

REACTIONS (3)
  - Injury [Recovered/Resolved]
  - Epistaxis [Recovered/Resolved]
  - Fall [Recovered/Resolved]

NARRATIVE: CASE EVENT DATE: 20151230
